FAERS Safety Report 5934528-X (Version None)
Quarter: 2008Q4

REPORT INFORMATION
  Report Type: 
  Country: None (occurrence: None)
  Receive Date: 20081029
  Receipt Date: 20081017
  Transmission Date: 20090506
  Serious: Yes (Hospitalization)
  Sender: FDA-Public Use
  Company Number: HK-PFIZER INC-2008014495

PATIENT
  Sex: Male
  Weight: 69 kg

DRUGS (1)
  1. SU-011,248 [Suspect]
     Indication: METASTATIC RENAL CELL CARCINOMA
     Route: 048
     Dates: start: 20060522, end: 20070819

REACTIONS (3)
  - CONTUSION [None]
  - GENERALISED OEDEMA [None]
  - RASH [None]
